FAERS Safety Report 11336184 (Version 1)
Quarter: 2015Q3

REPORT INFORMATION
  Report Type: Report from Study
  Country: IT (occurrence: IT)
  Receive Date: 20150804
  Receipt Date: 20150804
  Transmission Date: 20151125
  Serious: Yes (Other)
  Sender: FDA-Public Use
  Company Number: IT-INCYTE CORPORATION-2015IN003725

PATIENT
  Age: 62 Year
  Sex: Male

DRUGS (3)
  1. INC424 [Suspect]
     Active Substance: RUXOLITINIB
     Indication: POLYCYTHAEMIA VERA
     Dosage: 20 MG, BID
     Route: 048
     Dates: start: 20111110
  2. NEBILOX [Concomitant]
     Active Substance: NEBIVOLOL HYDROCHLORIDE
     Indication: HYPERTENSION
     Dosage: 5 MG, QD
     Route: 048
     Dates: start: 1992
  3. VIREAD [Concomitant]
     Active Substance: TENOFOVIR DISOPROXIL FUMARATE
     Indication: HEPATITIS B
     Dosage: 1 DF, UNK (1 CP 5 TIMES A WEEK)
     Route: 048
     Dates: start: 20130524

REACTIONS (4)
  - Salivary gland cancer [Not Recovered/Not Resolved]
  - Keratoacanthoma [Unknown]
  - Squamous cell carcinoma of skin [Unknown]
  - Second primary malignancy [Not Recovered/Not Resolved]

NARRATIVE: CASE EVENT DATE: 20150331
